FAERS Safety Report 6525673-9 (Version None)
Quarter: 2009Q4

REPORT INFORMATION
  Report Type: 
  Country: None (occurrence: None)
  Receive Date: 20091214
  Receipt Date: 20090127
  Transmission Date: 20100525
  Serious: Yes (Other)
  Sender: FDA-Public Use
  Company Number: 611439

PATIENT
  Age: 40 Year
  Sex: Female
  Weight: 76.7 kg

DRUGS (2)
  1. PEGASYS [Suspect]
     Indication: HEPATITIS C
     Dosage: 180 UG 1 PER WEEK SUBCUTANEOUS
     Route: 058
     Dates: start: 20081107, end: 20090112
  2. RIBAVIRIN [Suspect]
     Indication: HEPATITIS C
     Dosage: 1000 MG DAILY 2 PER DAY ORAL
     Route: 048
     Dates: start: 20081107, end: 20090112

REACTIONS (1)
  - PANCYTOPENIA [None]
